FAERS Safety Report 4941743-0 (Version None)
Quarter: 2006Q1

REPORT INFORMATION
  Report Type: 
  Country: None (occurrence: None)
  Receive Date: 20060308
  Receipt Date: 20060223
  Transmission Date: 20060701
  Serious: Yes (Other)
  Sender: FDA-Public Use
  Company Number: 2006027026

PATIENT
  Age: 72 Year
  Sex: Female
  Weight: 68.9467 kg

DRUGS (5)
  1. LYRICA [Suspect]
     Indication: PAIN
     Dosage: 25 MG (25 MG, 1 IN 1 D),
     Dates: start: 20060101, end: 20060222
  2. LIPITOR [Concomitant]
  3. COZAAR [Concomitant]
  4. HYDROCHLOROTHIAZIDE [Concomitant]
  5. ACEBUTOLOL [Concomitant]

REACTIONS (4)
  - CONDITION AGGRAVATED [None]
  - HYPERTENSION [None]
  - PALPITATIONS [None]
  - STOMACH DISCOMFORT [None]
